FAERS Safety Report 8131191-7 (Version None)
Quarter: 2012Q1

REPORT INFORMATION
  Report Type: 
  Country: None (occurrence: None)
  Receive Date: 20120213
  Receipt Date: 20120202
  Transmission Date: 20120608
  Serious: Yes (Other)
  Sender: FDA-Public Use
  Company Number: PT-JNJFOC-20080204426

PATIENT
  Age: 26 Year
  Sex: Male

DRUGS (4)
  1. REMICADE [Suspect]
     Indication: CROHN'S DISEASE
     Route: 042
     Dates: start: 20080101
  2. REMICADE [Suspect]
     Route: 042
     Dates: start: 20040101
  3. HYDROCORTISONE [Concomitant]
     Indication: PREMEDICATION
  4. MYCOPHENOLATE MOFETIL [Concomitant]

REACTIONS (9)
  - GRAND MAL CONVULSION [None]
  - INTENTIONAL OVERDOSE [None]
  - OSTEOMYELITIS [None]
  - HYPERSENSITIVITY [None]
  - PYODERMA GANGRENOSUM [None]
  - INFUSION RELATED REACTION [None]
  - CROHN'S DISEASE [None]
  - OTITIS MEDIA [None]
  - OSTEONECROSIS [None]
